FAERS Safety Report 24949672 (Version 2)
Quarter: 2025Q1

REPORT INFORMATION
  Report Type: Report from Study
  Country: CA (occurrence: CA)
  Receive Date: 20250210
  Receipt Date: 20250218
  Transmission Date: 20250408
  Serious: Yes (Other)
  Sender: TAKEDA
  Company Number: CA-TAKEDA-2018TUS027307

PATIENT
  Sex: Male

DRUGS (3)
  1. VEDOLIZUMAB [Suspect]
     Active Substance: VEDOLIZUMAB
     Indication: Colitis ulcerative
  2. VEDOLIZUMAB [Suspect]
     Active Substance: VEDOLIZUMAB
  3. Salofalk [Concomitant]
     Dosage: UNK UNK, QD

REACTIONS (2)
  - Colitis ulcerative [Unknown]
  - Feeling abnormal [Unknown]
